FAERS Safety Report 5281124-6 (Version None)
Quarter: 2007Q1

REPORT INFORMATION
  Report Type: 
  Country: None (occurrence: None)
  Receive Date: 20070323
  Receipt Date: 20070312
  Transmission Date: 20070707
  Serious: Yes (Death, Life-Threatening)
  Sender: FDA-Public Use
  Company Number: GXKR2007GB02477

PATIENT
  Age: 89 Year
  Sex: Female
  Weight: 55 kg

DRUGS (6)
  1. ASPIRIN [Suspect]
     Dosage: 300 MG, ORAL
     Route: 048
     Dates: start: 20060914, end: 20060914
  2. CLOPIDOGREL [Suspect]
     Dosage: 300 MG, ORAL
     Route: 048
     Dates: start: 20060914, end: 20060914
  3. ENOXAPARIN (ENOXAPARIN, HEPARIN-FRACTION) [Suspect]
     Dosage: 30 MG, INTRAVENOUS
     Route: 042
     Dates: start: 20060914, end: 20060914
  4. ENOXAPARIN (ENOXAPARIN, HEPARIN-FRACTION) [Suspect]
     Dosage: 55 MG, SUBCUTANEOUS
     Route: 058
     Dates: start: 20060914, end: 20060914
  5. TENECTEPLASE (TENECTEPLASE) [Suspect]
     Dosage: 30 MG, INTRAVENOUS
     Route: 042
     Dates: start: 20060914, end: 20060914
  6. PREDNISOLONE [Concomitant]

REACTIONS (3)
  - CHEST PAIN [None]
  - ELECTROCARDIOGRAM ST SEGMENT ABNORMAL [None]
  - GASTRIC HAEMORRHAGE [None]
